FAERS Safety Report 4514179-4 (Version None)
Quarter: 2004Q4

REPORT INFORMATION
  Report Type: 
  Country: None (occurrence: None)
  Receive Date: 20041124
  Receipt Date: 20041116
  Transmission Date: 20050328
  Serious: Yes (Other)
  Sender: FDA-Public Use
  Company Number: STA-AE-04-MTX-483

PATIENT
  Age: 72 Year
  Sex: Female

DRUGS (7)
  1. METHOTREXATE [Suspect]
     Indication: RHEUMATOID ARTHRITIS
     Dosage: 2.5 MG 4X PER 1 WK,
  2. ENBREL [Suspect]
     Indication: RHEUMATOID ARTHRITIS
     Dosage: 25 MG 2X PER 1 WK, SC
     Route: 058
     Dates: start: 20031218, end: 20040810
  3. ARAVA [Suspect]
     Indication: RHEUMATOID ARTHRITIS
     Dosage: 10 MG 1X PER 1 DAY
  4. ROFECOXIB [Concomitant]
  5. GLUCOSAMINE (GLUCOSAMINE) [Concomitant]
  6. AMLODIPINE [Concomitant]
  7. CARVEDILOL [Concomitant]

REACTIONS (3)
  - LOBAR PNEUMONIA [None]
  - PNEUMONIA KLEBSIELLA [None]
  - PULMONARY TUBERCULOSIS [None]
